FAERS Safety Report 10435662 (Version 1)
Quarter: 2014Q3

REPORT INFORMATION
  Report Type: Spontaneous
  Country: US (occurrence: US)
  Receive Date: 20140908
  Receipt Date: 20140908
  Transmission Date: 20150326
  Serious: No
  Sender: FDA-Public Use
  Company Number: US-TEVA-472215USA

PATIENT
  Sex: Female

DRUGS (2)
  1. FUROSEMIDE. [Concomitant]
     Active Substance: FUROSEMIDE
     Dosage: HS
  2. GLIBENCLAMIDE [Suspect]
     Active Substance: GLYBURIDE
     Indication: BLOOD GLUCOSE INCREASED
     Dates: start: 20140325, end: 20140326

REACTIONS (4)
  - Cough [Recovering/Resolving]
  - Oedema mouth [Unknown]
  - Swelling face [Unknown]
  - Lip swelling [Unknown]
